FAERS Safety Report 8862964 (Version 1)
Quarter: 2012Q4

REPORT INFORMATION
  Report Type: 
  Country: US (occurrence: US)
  Receive Date: 20121026
  Receipt Date: 20121026
  Transmission Date: 20130627
  Serious: No
  Sender: FDA-Public Use
  Company Number: US-ALLERGAN-1208389US

PATIENT
  Age: 73 Year
  Sex: Male

DRUGS (4)
  1. ALPHAGAN P [Suspect]
     Indication: POSTOPERATIVE CARE
     Dosage: 1 Gtt, UNK
     Route: 047
     Dates: start: 20120614, end: 20120614
  2. BROMFENAC [Concomitant]
     Indication: POSTOPERATIVE CARE
     Dosage: UNK
     Route: 047
     Dates: start: 20120614
  3. ZYMAXID [Concomitant]
     Indication: POSTOPERATIVE CARE
     Dosage: UNK
     Route: 047
     Dates: start: 20120614
  4. PREDNISONE ACETATE [Concomitant]
     Indication: POSTOPERATIVE CARE
     Dosage: UNK
     Route: 047
     Dates: start: 20120614

REACTIONS (3)
  - Product solubility abnormal [Unknown]
  - Inappropriate schedule of drug administration [Unknown]
  - Foreign body sensation in eyes [Unknown]
